FAERS Safety Report 20338208 (Version 2)
Quarter: 2022Q1

REPORT INFORMATION
  Report Type: Spontaneous
  Country: DE (occurrence: DE)
  Receive Date: 20220115
  Receipt Date: 20220131
  Transmission Date: 20220424
  Serious: Yes (Death)
  Sender: FDA-Public Use
  Company Number: DE-NOVARTISPH-NVSC2022DE008265

PATIENT
  Age: 69 Year
  Sex: Female
  Weight: 50 kg

DRUGS (1)
  1. KYMRIAH [Suspect]
     Active Substance: TISAGENLECLEUCEL
     Indication: Diffuse large B-cell lymphoma
     Dosage: UNK, ONCE/SINGLE
     Route: 042
     Dates: start: 20220106

REACTIONS (2)
  - Cytokine release syndrome [Fatal]
  - Cardiac failure [Fatal]

NARRATIVE: CASE EVENT DATE: 20220107
